FAERS Safety Report 8293566 (Version 11)
Quarter: 2014Q4

REPORT INFORMATION
  Report Type: Report from Study
  Country: DE (occurrence: DE)
  Receive Date: 20111215
  Receipt Date: 20141215
  Transmission Date: 20150529
  Serious: Yes (Other)
  Sender: FDA-Public Use
  Company Number: DE-ROCHE-1010769

PATIENT
  Age: 65 Year
  Sex: Female
  Weight: 51.5 kg

DRUGS (14)
  1. IBUPROFEN. [Concomitant]
     Active Substance: IBUPROFEN
     Route: 065
     Dates: start: 20110816
  2. MORPHINE [Concomitant]
     Active Substance: MORPHINE
     Route: 065
     Dates: start: 20110816
  3. GABAPENTIN. [Concomitant]
     Active Substance: GABAPENTIN
     Dosage: 2/TBL
     Route: 065
     Dates: start: 20111010, end: 20111102
  4. SPIRIVA [Concomitant]
     Active Substance: TIOTROPIUM BROMIDE MONOHYDRATE
     Route: 065
     Dates: start: 20110816
  5. TRAMADOL [Concomitant]
     Active Substance: TRAMADOL
     Dosage: 75 DROPS DAILY
     Route: 065
     Dates: start: 20110725
  6. ACTIVELLE [Concomitant]
     Active Substance: ESTRADIOL\NORETHINDRONE ACETATE
     Route: 065
     Dates: start: 2011
  7. NOVALGIN [Concomitant]
     Active Substance: METAMIZOLE SODIUM
     Dosage: 30/DROP
     Route: 065
     Dates: start: 20110919
  8. TRAMAL LONG [Concomitant]
     Active Substance: TRAMADOL
     Dosage: UNKNOWN
     Route: 065
     Dates: start: 20110725
  9. VOLTAREN [Concomitant]
     Active Substance: DICLOFENAC SODIUM
     Route: 065
     Dates: start: 2011
  10. VEMURAFENIB [Suspect]
     Active Substance: VEMURAFENIB
     Indication: METASTATIC MALIGNANT MELANOMA
     Route: 048
     Dates: start: 20110725
  11. VEMURAFENIB [Suspect]
     Active Substance: VEMURAFENIB
     Dosage: LAST DOSE PRIOR TO SAE: 19/SEP/2011.
     Route: 048
     Dates: start: 20111017, end: 20111114
  12. TRAMADOL [Concomitant]
     Active Substance: TRAMADOL
     Dosage: 25 / DROP
     Route: 065
     Dates: start: 20110919
  13. JODID [Concomitant]
     Active Substance: IODINE
     Route: 065
     Dates: start: 2011
  14. NOVALGIN [Concomitant]
     Active Substance: METAMIZOLE SODIUM
     Dosage: 90 DROPS DAILY
     Route: 065
     Dates: start: 20110725

REACTIONS (1)
  - Malignant melanoma [Recovered/Resolved]

NARRATIVE: CASE EVENT DATE: 20110919
